FAERS Safety Report 13540058 (Version 1)
Quarter: 2017Q2

REPORT INFORMATION
  Report Type: Spontaneous
  Country: US (occurrence: US)
  Receive Date: 20170512
  Receipt Date: 20170512
  Transmission Date: 20170830
  Serious: No
  Sender: FDA-Public Use
  Company Number: US-GLAXOSMITHKLINE-US2017066609

PATIENT
  Age: 75 Year
  Sex: Female

DRUGS (1)
  1. PREVACID 24 HR [Suspect]
     Active Substance: LANSOPRAZOLE
     Indication: GASTROOESOPHAGEAL REFLUX DISEASE
     Dosage: TOOK 1 PILL

REACTIONS (3)
  - Emergency care examination [Unknown]
  - Product use in unapproved indication [Unknown]
  - Gastrointestinal inflammation [Recovered/Resolved]
